FAERS Safety Report 5069930-4 (Version None)
Quarter: 2006Q3

REPORT INFORMATION
  Report Type: 
  Country: None (occurrence: None)
  Receive Date: 20060714
  Receipt Date: 20060403
  Transmission Date: 20061208
  Serious: No
  Sender: FDA-Public Use
  Company Number: 2006SP001525

PATIENT
  Age: 56 Year
  Sex: Female
  Weight: 120.2032 kg

DRUGS (11)
  1. LUNESTA [Suspect]
     Indication: INITIAL INSOMNIA
     Dosage: 1X;ORAL
     Route: 048
     Dates: start: 20060101, end: 20060101
  2. QUININE SULFATE [Concomitant]
  3. ZOLOFT [Concomitant]
  4. PAXIL [Concomitant]
  5. FUROSEMIDE [Concomitant]
  6. ALPRAZOLAM [Concomitant]
  7. ESTRADIOL INJ [Concomitant]
  8. VITAMINS [Concomitant]
  9. POTASSIUM [Concomitant]
  10. VITAMIN B COMPLEX CAP [Concomitant]
  11. METOPROLOL SUCCINATE [Concomitant]

REACTIONS (1)
  - DYSGEUSIA [None]
